FAERS Safety Report 17875148 (Version 1)
Quarter: 2020Q2

REPORT INFORMATION
  Report Type: Spontaneous
  Country: US (occurrence: US)
  Receive Date: 20200609
  Receipt Date: 20200609
  Transmission Date: 20200714
  Serious: Yes (Other)
  Sender: FDA-Public Use
  Company Number: None

PATIENT
  Age: 68 Year
  Sex: Female

DRUGS (17)
  1. MONTELUKAST [Suspect]
     Active Substance: MONTELUKAST SODIUM
     Indication: HYPERSENSITIVITY
     Dosage: ?
     Route: 048
     Dates: start: 20191205, end: 20200608
  2. PROAIR HFA [Concomitant]
     Active Substance: ALBUTEROL SULFATE
  3. VITAMIN C [Concomitant]
     Active Substance: ASCORBIC ACID
  4. BI-PAP MACHINE [Concomitant]
     Active Substance: DEVICE
  5. ALLERGY NASAL SPRAY TRIAMCINOLONE ACETONIDE [Concomitant]
  6. MULTIVITAMIN [Concomitant]
     Active Substance: VITAMINS
  7. MONTELUKAST [Suspect]
     Active Substance: MONTELUKAST SODIUM
     Indication: ASTHMA
     Dosage: ?
     Route: 048
     Dates: start: 20191205, end: 20200608
  8. PILOCARPINE. [Concomitant]
     Active Substance: PILOCARPINE
  9. LEVOTHYROXINE. [Concomitant]
     Active Substance: LEVOTHYROXINE
  10. LORATIDINE [Concomitant]
     Active Substance: LORATADINE
  11. OMEPRAZOLE. [Concomitant]
     Active Substance: OMEPRAZOLE
  12. FAMOTIDINE. [Concomitant]
     Active Substance: FAMOTIDINE
  13. CITRACAL PETITES WITH VITAMIN D [Concomitant]
  14. ZINC. [Concomitant]
     Active Substance: ZINC
  15. BREO ELLIPTA [Concomitant]
     Active Substance: FLUTICASONE FUROATE\VILANTEROL TRIFENATATE
  16. RESTASIS [Concomitant]
     Active Substance: CYCLOSPORINE
  17. RETAINE [Concomitant]
     Active Substance: HYPROMELLOSE 2910 (4000 MPA.S)

REACTIONS (3)
  - Depressed mood [None]
  - Negative thoughts [None]
  - Feeling abnormal [None]

NARRATIVE: CASE EVENT DATE: 20200609
